FAERS Safety Report 10199596 (Version 2)
Quarter: 2016Q2

REPORT INFORMATION
  Report Type: Spontaneous
  Country: US (occurrence: US)
  Receive Date: 20140527
  Receipt Date: 20160601
  Transmission Date: 20160815
  Serious: No
  Sender: FDA-Public Use
  Company Number: US-NOVEN-14US009151

PATIENT
  Age: 55 Year
  Sex: Female

DRUGS (4)
  1. HYDROCODONE [Concomitant]
     Active Substance: HYDROCODONE
     Indication: ARTHRITIS
  2. DAYTRANA [Suspect]
     Active Substance: METHYLPHENIDATE
     Indication: HYPERSOMNIA
     Dosage: 30 MG, UNK
     Route: 062
     Dates: start: 2011
  3. DAYTRANA [Suspect]
     Active Substance: METHYLPHENIDATE
     Indication: SLEEP APNOEA SYNDROME
  4. LERKA [Concomitant]
     Indication: NERVE INJURY

REACTIONS (3)
  - Off label use [Not Recovered/Not Resolved]
  - Therapeutic response unexpected [Not Recovered/Not Resolved]
  - Product quality issue [Not Recovered/Not Resolved]

NARRATIVE: CASE EVENT DATE: 2011
